FAERS Safety Report 20315253 (Version 1)
Quarter: 2022Q1

REPORT INFORMATION
  Report Type: Spontaneous
  Country: US (occurrence: None)
  Receive Date: 20220110
  Receipt Date: 20220110
  Transmission Date: 20220423
  Serious: No
  Sender: FDA-Public Use
  Company Number: US-ROCHE-2802892

PATIENT
  Sex: Male

DRUGS (2)
  1. RITUXAN [Suspect]
     Active Substance: RITUXIMAB
     Indication: Microscopic polyangiitis
     Dosage: LAST INFUSION 20-OCT-2020
     Route: 042
     Dates: start: 201609
  2. RITUXAN [Suspect]
     Active Substance: RITUXIMAB
     Indication: Congenital syphilitic osteochondritis

REACTIONS (2)
  - B-lymphocyte count decreased [Not Recovered/Not Resolved]
  - Immune system disorder [Not Recovered/Not Resolved]
